FAERS Safety Report 12645867 (Version 1)
Quarter: 2016Q3

REPORT INFORMATION
  Report Type: Spontaneous
  Country: US (occurrence: US)
  Receive Date: 20160811
  Receipt Date: 20160811
  Transmission Date: 20161109
  Serious: No
  Sender: FDA-Public Use
  Company Number: US-ENDO PHARMACEUTICALS INC.-2016-002600

PATIENT
  Age: 76 Year
  Sex: Female

DRUGS (3)
  1. PREDNISONE TABLETS [Suspect]
     Active Substance: PREDNISONE
     Indication: PRODUCT USED FOR UNKNOWN INDICATION
     Route: 065
     Dates: start: 20160229
  2. MYRBETRIQ [Suspect]
     Active Substance: MIRABEGRON
     Indication: HYPERTONIC BLADDER
     Route: 065
     Dates: start: 201602, end: 201602
  3. MYRBETRIQ [Suspect]
     Active Substance: MIRABEGRON
     Route: 065
     Dates: start: 20160229

REACTIONS (2)
  - Rash [Recovered/Resolved]
  - Pruritus [Recovered/Resolved]

NARRATIVE: CASE EVENT DATE: 20160229
